FAERS Safety Report 7056543-8 (Version None)
Quarter: 2010Q4

REPORT INFORMATION
  Report Type: 
  Country: None (occurrence: None)
  Receive Date: 20101018
  Receipt Date: 20101005
  Transmission Date: 20110411
  Serious: Yes (Other)
  Sender: FDA-Public Use
  Company Number: 1000016675

PATIENT
  Age: 84 Year
  Sex: Female

DRUGS (2)
  1. NEBIVOLOL HCL [Suspect]
     Indication: HYPERTENSION
     Dosage: 5 MG (5 MG,1 IN 1 D),ORAL
     Route: 048
     Dates: start: 20070101
  2. ATACAND [Suspect]
     Indication: HYPERTENSION

REACTIONS (1)
  - PERIPHERAL SENSORIMOTOR NEUROPATHY [None]
